FAERS Safety Report 9241492 (Version 2)
Quarter: 2013Q2

REPORT INFORMATION
  Report Type: Spontaneous
  Country: BE (occurrence: BE)
  Receive Date: 20130419
  Receipt Date: 20130529
  Transmission Date: 20140414
  Serious: Yes (Death, Hospitalization, Other)
  Sender: FDA-Public Use
  Company Number: BE-JNJFOC-20130408790

PATIENT
  Age: 74 Year
  Sex: Female

DRUGS (10)
  1. XARELTO [Suspect]
     Indication: PRODUCT USED FOR UNKNOWN INDICATION
     Route: 048
     Dates: start: 20121227, end: 2013
  2. XARELTO [Suspect]
     Indication: PRODUCT USED FOR UNKNOWN INDICATION
     Route: 048
     Dates: start: 2013
  3. ZOLPIDEM [Concomitant]
     Route: 065
  4. ALDACTONE [Concomitant]
     Route: 065
  5. BISOPROLOL [Concomitant]
     Route: 065
  6. BURINEX [Concomitant]
     Route: 065
  7. INEGY [Concomitant]
     Route: 065
  8. LANOXIN [Concomitant]
     Route: 065
  9. RANITIDINE [Concomitant]
     Route: 065
  10. SIPRALEXA [Concomitant]
     Route: 065

REACTIONS (3)
  - Cerebral ischaemia [Fatal]
  - Gastrointestinal haemorrhage [Unknown]
  - Cardiac failure [Unknown]
